FAERS Safety Report 21484625 (Version 1)
Quarter: 2022Q4

REPORT INFORMATION
  Report Type: Spontaneous
  Country: DE (occurrence: DE)
  Receive Date: 20221020
  Receipt Date: 20221020
  Transmission Date: 20230112
  Serious: Yes (Hospitalization)
  Sender: FDA-Public Use
  Company Number: DE-ADRED-08254-01

PATIENT
  Age: 79 Year
  Sex: Male

DRUGS (11)
  1. AMIODARONE [Suspect]
     Active Substance: AMIODARONE
     Indication: Product used for unknown indication
     Dosage: 200 MILLIGRAM DAILY; 200 MG, 1-0-0-0
     Route: 065
  2. METOPROLOL [Suspect]
     Active Substance: METOPROLOL
     Indication: Product used for unknown indication
     Dosage: 1.5 DOSAGE FORMS DAILY; 95 MG, 0.5-0-1-0
     Route: 065
  3. ELIQUIS [Concomitant]
     Active Substance: APIXABAN
     Indication: Product used for unknown indication
     Dosage: 2 DOSAGE FORMS DAILY; 1-0-1-0
  4. MAGNESIUM [Concomitant]
     Active Substance: MAGNESIUM
     Indication: Product used for unknown indication
     Dosage: 300 MILLIGRAM DAILY; 300 MG, 0-0-1-0, DRAGEES
  5. magaldrate ratiopharm [Concomitant]
     Indication: Product used for unknown indication
     Dosage: IF NECESSARY,  MAGALDRATE RATIOPHARM 800
  6. TAMSULOSIN [Concomitant]
     Active Substance: TAMSULOSIN
     Indication: Product used for unknown indication
     Dosage: .4 MILLIGRAM DAILY; 0.4 MG, 0-0-1-0
  7. TORSEMIDE [Concomitant]
     Active Substance: TORSEMIDE
     Indication: Product used for unknown indication
     Dosage: .5 DOSAGE FORMS DAILY; 10 MG, 0.5-0-0-0
  8. LERCANIDIPINE [Concomitant]
     Active Substance: LERCANIDIPINE
     Indication: Product used for unknown indication
     Dosage: .5 DOSAGE FORMS DAILY; 10 MG, 0-0-0.5-0
  9. CANDESARTAN [Concomitant]
     Active Substance: CANDESARTAN
     Indication: Product used for unknown indication
     Dosage: 1.5 DOSAGE FORMS DAILY; 16 MG, 1-0-0.5-0
  10. SIMVASTATIN [Concomitant]
     Active Substance: SIMVASTATIN
     Indication: Product used for unknown indication
     Dosage: 40 MILLIGRAM DAILY; 40 MG, 0-0-1-0
  11. kalinor [Concomitant]
     Indication: Product used for unknown indication
     Dosage: 2 DOSAGE FORMS DAILY; 1-0-1-0

REACTIONS (4)
  - Malaise [Unknown]
  - Bradycardia [Unknown]
  - Dizziness [Unknown]
  - Hypertension [Unknown]
